FAERS Safety Report 5250593-X (Version None)
Quarter: 2007Q1

REPORT INFORMATION
  Report Type: 
  Country: None (occurrence: None)
  Receive Date: 20070228
  Receipt Date: 20060602
  Transmission Date: 20070707
  Serious: No
  Sender: FDA-Public Use
  Company Number: US-GLAXOSMITHKLINE-A0607748A

PATIENT
  Sex: Female

DRUGS (1)
  1. LAMICTAL [Suspect]
     Dosage: 100MG TWICE PER DAY
     Dates: start: 20051007

REACTIONS (4)
  - ALOPECIA [None]
  - BRUXISM [None]
  - HEAD TITUBATION [None]
  - SLEEP DISORDER [None]
